FAERS Safety Report 5989300-1 (Version None)
Quarter: 2008Q4

REPORT INFORMATION
  Report Type: 
  Country: None (occurrence: None)
  Receive Date: 20081205
  Receipt Date: 20081118
  Transmission Date: 20090506
  Serious: Yes (Hospitalization, Other)
  Sender: FDA-Public Use
  Company Number: DSA_02916_2008

PATIENT
  Sex: Female
  Weight: 3.1752 kg

DRUGS (1)
  1. VANIQA [Suspect]
     Indication: DRUG EXPOSURE DURING PREGNANCY
     Dosage: (DF)

REACTIONS (4)
  - CAESAREAN SECTION [None]
  - FOETAL HEART RATE INCREASED [None]
  - MATERNAL DRUGS AFFECTING FOETUS [None]
  - MECONIUM STAIN [None]
